FAERS Safety Report 14326861 (Version 1)
Quarter: 2017Q4

REPORT INFORMATION
  Report Type: Spontaneous
  Country: US (occurrence: US)
  Receive Date: 20171226
  Receipt Date: 20171226
  Transmission Date: 20180321
  Serious: Yes (Death)
  Sender: FDA-Public Use
  Company Number: None

PATIENT
  Age: 66 Year
  Sex: Female
  Weight: 67.5 kg

DRUGS (1)
  1. LINEZOLID. [Suspect]
     Active Substance: LINEZOLID
     Indication: URINARY TRACT INFECTION
     Dosage: QUANTITY:1 2;OTHER FREQUENCY:EVERY HOUR;?
     Route: 042
     Dates: start: 20170725, end: 20170729

REACTIONS (4)
  - Product quality issue [None]
  - White blood cell count decreased [None]
  - Nausea [None]
  - Sepsis [None]

NARRATIVE: CASE EVENT DATE: 20170729
